FAERS Safety Report 16277959 (Version 2)
Quarter: 2020Q2

REPORT INFORMATION
  Report Type: Spontaneous
  Country: US (occurrence: US)
  Receive Date: 20190506
  Receipt Date: 20200421
  Transmission Date: 20200713
  Serious: Yes (Hospitalization, Disabling, Other)
  Sender: FDA-Public Use
  Company Number: US-ASTRAZENECA-2019SE58521

PATIENT
  Age: 708 Month
  Sex: Female
  Weight: 83.9 kg

DRUGS (61)
  1. PRILOSEC [Suspect]
     Active Substance: OMEPRAZOLE MAGNESIUM
     Indication: GASTROOESOPHAGEAL REFLUX DISEASE
     Dosage: GENERIC OMEPRAZOLE
     Route: 065
     Dates: start: 20131209
  2. LEVOTHYROXINE. [Concomitant]
     Active Substance: LEVOTHYROXINE
     Indication: HYPOTHYROIDISM
     Dates: start: 2005, end: 2017
  3. GABAPENTIN. [Concomitant]
     Active Substance: GABAPENTIN
     Indication: NEURALGIA
     Dates: start: 20080207, end: 20150225
  4. RENVELA [Concomitant]
     Active Substance: SEVELAMER CARBONATE
     Indication: HYPOCALCAEMIA
     Dates: start: 20100224, end: 20130423
  5. BENADRYL [Concomitant]
     Active Substance: DIPHENHYDRAMINE HYDROCHLORIDE
     Indication: MENOPAUSE
     Dosage: AS NEEDED
     Dates: start: 2010
  6. LORAZEPAM. [Concomitant]
     Active Substance: LORAZEPAM
  7. TRAZODONE [Concomitant]
     Active Substance: TRAZODONE HYDROCHLORIDE
  8. NEPHRO VITE RX [Concomitant]
     Active Substance: ASCORBIC ACID\BIOTIN\CALCIUM PANTOTHENATE\CYANOCOBALAMIN\FOLIC ACID\NIACINAMIDE\PYRIDOXINE HYDROCHLORIDE\RIBOFLAVIN\THIAMINE MONONITRATE
  9. PROMETHAZINE [Concomitant]
     Active Substance: PROMETHAZINE HYDROCHLORIDE
  10. AZITHROMYCIN ANHYDROUS. [Concomitant]
     Active Substance: AZITHROMYCIN ANHYDROUS
  11. TRIAMCINOLON [Concomitant]
  12. AMLODIPINE [Concomitant]
     Active Substance: AMLODIPINE BESYLATE
  13. NEXIUM [Suspect]
     Active Substance: ESOMEPRAZOLE MAGNESIUM
     Indication: GASTROOESOPHAGEAL REFLUX DISEASE
     Route: 048
     Dates: start: 20010104, end: 20091231
  14. PROTONIX [Suspect]
     Active Substance: PANTOPRAZOLE SODIUM
     Indication: GASTROOESOPHAGEAL REFLUX DISEASE
     Route: 065
     Dates: start: 20081214
  15. ATENOLOL. [Concomitant]
     Active Substance: ATENOLOL
  16. APAP/CODEINE [Concomitant]
     Active Substance: ACETAMINOPHEN\CODEINE PHOSPHATE
  17. CIPROFLOXACIN. [Concomitant]
     Active Substance: CIPROFLOXACIN
  18. SENSIPAR [Concomitant]
     Active Substance: CINACALCET HYDROCHLORIDE
  19. PRILOSEC [Suspect]
     Active Substance: OMEPRAZOLE MAGNESIUM
     Indication: GASTROOESOPHAGEAL REFLUX DISEASE
     Dosage: GENERIC OMEPRAZOLE
     Route: 065
     Dates: start: 201308, end: 20131209
  20. PROTONIX [Suspect]
     Active Substance: PANTOPRAZOLE SODIUM
     Indication: GASTROOESOPHAGEAL REFLUX DISEASE
     Dosage: GENERIC PANTOPRAZOLE
     Route: 065
     Dates: start: 20110611, end: 20110922
  21. PROMETHAZINE [Concomitant]
     Active Substance: PROMETHAZINE HYDROCHLORIDE
     Indication: SLEEP DISORDER
     Dates: start: 20120111, end: 20170626
  22. CLONIDINE. [Concomitant]
     Active Substance: CLONIDINE
     Indication: MENOPAUSE
     Dates: start: 20040624, end: 20110525
  23. NASONEX [Concomitant]
     Active Substance: MOMETASONE FUROATE
  24. NITROFURANTOIN MONO [Concomitant]
     Active Substance: NITROFURANTOIN
  25. EPOGEN [Concomitant]
     Active Substance: ERYTHROPOIETIN
  26. PREVACID [Suspect]
     Active Substance: LANSOPRAZOLE
     Indication: GASTROOESOPHAGEAL REFLUX DISEASE
     Route: 065
     Dates: start: 20080407
  27. AMOXICILLIN. [Concomitant]
     Active Substance: AMOXICILLIN
     Indication: INFECTION
     Dates: start: 20050515, end: 20090427
  28. AMITRIPTYLINE [Concomitant]
     Active Substance: AMITRIPTYLINE
  29. OXYCODONE AND ACETAMINOPHEN [Concomitant]
     Active Substance: ACETAMINOPHEN\OXYCODONE HYDROCHLORIDE
  30. SMZ/TMP [Concomitant]
     Active Substance: SULFAMETHOXAZOLE\TRIMETHOPRIM
  31. METRONIDAZOL [Concomitant]
     Active Substance: METRONIDAZOLE
  32. ZOSTAVAX [Concomitant]
     Active Substance: VARICELLA-ZOSTER VIRUS STRAIN OKA/MERCK LIVE ANTIGEN
  33. ESTERASE [Concomitant]
  34. PROTONIX [Suspect]
     Active Substance: PANTOPRAZOLE SODIUM
     Indication: GASTROOESOPHAGEAL REFLUX DISEASE
     Route: 065
     Dates: start: 200001, end: 201009
  35. PROMETHAZINE [Concomitant]
     Active Substance: PROMETHAZINE HYDROCHLORIDE
     Indication: HYPERSENSITIVITY
     Dates: start: 20120111, end: 20170626
  36. LEVOTHYROXINE. [Concomitant]
     Active Substance: LEVOTHYROXINE
     Indication: HYPOTHYROIDISM
     Dates: start: 20040630, end: 20041002
  37. METHOCARBAM [Concomitant]
     Active Substance: METHOCARBAMOL
  38. PROPO-N/APAP [Concomitant]
  39. MIRTAZAPINE. [Concomitant]
     Active Substance: MIRTAZAPINE
  40. LIDOC/PRILOC [Concomitant]
  41. PREVACID [Suspect]
     Active Substance: LANSOPRAZOLE
     Indication: GASTROOESOPHAGEAL REFLUX DISEASE
     Route: 065
     Dates: start: 200001, end: 201009
  42. AMOXICILLIN. [Concomitant]
     Active Substance: AMOXICILLIN
     Indication: ANTIBIOTIC THERAPY
     Dates: start: 20050515, end: 20090427
  43. NORTRIPTYLINE [Concomitant]
     Active Substance: NORTRIPTYLINE
  44. CEFDINIR. [Concomitant]
     Active Substance: CEFDINIR
  45. MORPHINE SUL [Concomitant]
     Active Substance: MORPHINE SULFATE
  46. SERTRALINE [Concomitant]
     Active Substance: SERTRALINE HYDROCHLORIDE
  47. FOLIC ACID. [Concomitant]
     Active Substance: FOLIC ACID
  48. NEXIUM [Suspect]
     Active Substance: ESOMEPRAZOLE MAGNESIUM
     Indication: GASTROOESOPHAGEAL REFLUX DISEASE
     Route: 048
     Dates: start: 200001, end: 201009
  49. PRILOSEC [Suspect]
     Active Substance: OMEPRAZOLE MAGNESIUM
     Indication: GASTROOESOPHAGEAL REFLUX DISEASE
     Route: 048
     Dates: start: 200001, end: 201009
  50. PROTONIX [Suspect]
     Active Substance: PANTOPRAZOLE SODIUM
     Indication: GASTROOESOPHAGEAL REFLUX DISEASE
     Route: 065
     Dates: start: 20081222, end: 200907
  51. ESTRADIOL. [Concomitant]
     Active Substance: ESTRADIOL
     Indication: MENOPAUSE
     Dates: start: 20070929, end: 20170626
  52. CLONIDINE. [Concomitant]
     Active Substance: CLONIDINE
     Indication: MENOPAUSAL SYMPTOMS
     Dates: start: 20040624, end: 20110525
  53. PEPCID [Concomitant]
     Active Substance: FAMOTIDINE
     Dosage: PRESCRIPTION
     Dates: start: 2000
  54. FENTANYL. [Concomitant]
     Active Substance: FENTANYL
  55. ONDANSETRON [Concomitant]
     Active Substance: ONDANSETRON
  56. COLACE [Concomitant]
     Active Substance: DOCUSATE SODIUM
  57. PROMETHAZINE [Concomitant]
     Active Substance: PROMETHAZINE HYDROCHLORIDE
     Indication: SEDATIVE THERAPY
     Dates: start: 20120111, end: 20170626
  58. ZANTAC [Concomitant]
     Active Substance: RANITIDINE HYDROCHLORIDE
     Dosage: 150 AND 300 PRESCRIPTION
     Dates: start: 1988, end: 1999
  59. METHADONE [Concomitant]
     Active Substance: METHADONE HYDROCHLORIDE
  60. METOCLOPRAM [Concomitant]
     Active Substance: METOCLOPRAMIDE
  61. TYLENOL [Concomitant]
     Active Substance: ACETAMINOPHEN

REACTIONS (7)
  - End stage renal disease [Not Recovered/Not Resolved]
  - Nephrogenic anaemia [Unknown]
  - Renal tubular necrosis [Unknown]
  - Renal failure [Unknown]
  - Tubulointerstitial nephritis [Not Recovered/Not Resolved]
  - Acute kidney injury [Not Recovered/Not Resolved]
  - Chronic kidney disease-mineral and bone disorder [Unknown]

NARRATIVE: CASE EVENT DATE: 200802
